FAERS Safety Report 14053398 (Version 1)
Quarter: 2017Q4

REPORT INFORMATION
  Report Type: Other
  Country: BG (occurrence: BG)
  Receive Date: 20171005
  Receipt Date: 20171005
  Transmission Date: 20180321
  Serious: Yes (Other)
  Sender: FDA-Public Use
  Company Number: BG-IMPAX LABORATORIES, INC-2017-IPXL-02833

PATIENT
  Age: 4 Year
  Sex: Female

DRUGS (1)
  1. ALBENZA [Suspect]
     Active Substance: ALBENDAZOLE
     Indication: PARASITIC GASTROENTERITIS
     Dosage: 400 MG TABLET, 0.5 DF, UNK
     Route: 048
     Dates: start: 20170913, end: 20170914

REACTIONS (4)
  - Viral infection [Recovering/Resolving]
  - Headache [Recovering/Resolving]
  - Pyrexia [Recovering/Resolving]
  - Nausea [Recovering/Resolving]

NARRATIVE: CASE EVENT DATE: 20170913
